FAERS Safety Report 12244832 (Version 1)
Quarter: 2016Q2

REPORT INFORMATION
  Report Type: Spontaneous
  Country: CA (occurrence: CA)
  Receive Date: 20160407
  Receipt Date: 20160407
  Transmission Date: 20160815
  Serious: Yes (Disabling, Other)
  Sender: FDA-Public Use
  Company Number: CA-BAYER-2016-061250

PATIENT
  Age: 50 Year
  Sex: Female
  Weight: 85 kg

DRUGS (3)
  1. CIPRO XL [Suspect]
     Active Substance: CIPROFLOXACIN\CIPROFLOXACIN HYDROCHLORIDE
     Indication: CALCULUS URINARY
  2. CIPRO XL [Suspect]
     Active Substance: CIPROFLOXACIN\CIPROFLOXACIN HYDROCHLORIDE
     Indication: URINARY TRACT INFECTION
     Dosage: 1000 MG, QD
     Route: 048
  3. CLINDAMYCIN [Concomitant]
     Active Substance: CLINDAMYCIN\CLINDAMYCIN PHOSPHATE
     Dosage: UNK

REACTIONS (14)
  - Burning sensation [None]
  - Hyperaesthesia [None]
  - Pain [None]
  - Alopecia [None]
  - Eye pain [None]
  - Hypoaesthesia [None]
  - Osteoporosis [None]
  - Diplopia [None]
  - Strabismus [None]
  - Weight increased [None]
  - Arthritis [None]
  - Feeling of body temperature change [None]
  - Nightmare [None]
  - Paraesthesia [None]
